FAERS Safety Report 22860764 (Version 4)
Quarter: 2023Q4

REPORT INFORMATION
  Report Type: Spontaneous
  Country: US (occurrence: US)
  Receive Date: 20230824
  Receipt Date: 20231030
  Transmission Date: 20240110
  Serious: No
  Sender: FDA-Public Use
  Company Number: US-PFIZER INC-202300280438

PATIENT
  Age: 76 Year
  Sex: Female
  Weight: 135 kg

DRUGS (1)
  1. ESTRING [Suspect]
     Active Substance: ESTRADIOL
     Indication: Vulvovaginal dryness
     Dosage: UNK, EVERY 3 MONTHS (EVERY 90 DAYS)
     Route: 067

REACTIONS (1)
  - Device difficult to use [Unknown]
